FAERS Safety Report 6735377-5 (Version None)
Quarter: 2010Q2

REPORT INFORMATION
  Report Type: 
  Country: None (occurrence: None)
  Receive Date: 20100521
  Receipt Date: 20100420
  Transmission Date: 20101027
  Serious: No
  Sender: FDA-Public Use
  Company Number: US-BAYER-201014645BCC

PATIENT
  Sex: Male

DRUGS (5)
  1. NAPROXEN [Suspect]
     Indication: BACK PAIN
     Route: 065
     Dates: start: 20100101, end: 20100101
  2. SKELAXIN [Concomitant]
     Indication: BACK PAIN
     Dosage: TOTAL DAILY DOSE: 3200 MG  UNIT DOSE: 800 MG
     Route: 048
  3. SKELAXIN [Concomitant]
     Dosage: TOTAL DAILY DOSE: 2400 MG  UNIT DOSE: 800 MG
     Route: 048
     Dates: end: 20100219
  4. MELOXICAM [Concomitant]
     Indication: BACK PAIN
     Dosage: TOTAL DAILY DOSE: 15 MG  UNIT DOSE: 7.5 MG
     Route: 048
     Dates: start: 20100125, end: 20100219
  5. DULOXETINE HYDROCHLORIDE [Concomitant]
     Indication: BACK PAIN
     Dosage: TOTAL DAILY DOSE: 30 MG  UNIT DOSE: 30 MG
     Route: 048
     Dates: start: 20100101

REACTIONS (2)
  - MYALGIA [None]
  - NONSPECIFIC REACTION [None]
